FAERS Safety Report 5113899-0 (Version None)
Quarter: 2006Q3

REPORT INFORMATION
  Report Type: 
  Country: None (occurrence: None)
  Receive Date: 20060921
  Receipt Date: 20060914
  Transmission Date: 20061208
  Serious: Yes (Death)
  Sender: FDA-Public Use
  Company Number: 163-20785-06090657

PATIENT
  Age: 18 Year
  Sex: Female

DRUGS (10)
  1. THALOMID [Suspect]
     Indication: ARTHRITIS
     Dosage: 4 IN 1 D, ORAL
     Route: 048
     Dates: start: 20060711, end: 20060901
  2. PREDNISONE TAB [Concomitant]
  3. KINERET [Concomitant]
  4. METHOTREXATE [Concomitant]
  5. NEXIUM [Concomitant]
  6. MAGNESIUM (MAGNESIUM) [Concomitant]
  7. NAPROXEN [Concomitant]
  8. FOLIC ACID [Concomitant]
  9. VITAMINS (VITAMINS) [Concomitant]
  10. CALCIUM (CALCIUM) [Concomitant]

REACTIONS (3)
  - ARTHRITIS [None]
  - HISTIOCYTOSIS HAEMATOPHAGIC [None]
  - PULMONARY HYPERTENSION [None]
